FAERS Safety Report 10180023 (Version 1)
Quarter: 2014Q2

REPORT INFORMATION
  Report Type: Spontaneous
  Country: US (occurrence: US)
  Receive Date: 20140519
  Receipt Date: 20140519
  Transmission Date: 20141212
  Serious: No
  Sender: FDA-Public Use
  Company Number: US-BRISTOL-MYERS SQUIBB COMPANY-20552642

PATIENT
  Age: 72 Year
  Sex: Male

DRUGS (10)
  1. BARACLUDE [Suspect]
  2. ATORVASTATIN [Concomitant]
  3. ALFUZOSIN [Concomitant]
  4. LISINOPRIL [Concomitant]
  5. AMLODIPINE [Concomitant]
  6. METOPROLOL [Concomitant]
  7. ASPIRIN [Concomitant]
  8. EQUATE [Concomitant]
  9. NIACIN [Concomitant]
  10. VITAMIN D3 [Concomitant]

REACTIONS (2)
  - Drug dose omission [Unknown]
  - Inappropriate schedule of drug administration [Unknown]
